FAERS Safety Report 14973550 (Version 1)
Quarter: 2018Q2

REPORT INFORMATION
  Report Type: Spontaneous
  Country: US (occurrence: US)
  Receive Date: 20180514
  Receipt Date: 20180514
  Transmission Date: 20180711
  Serious: Yes (Hospitalization)
  Sender: FDA-Public Use
  Company Number: None

PATIENT
  Age: 65 Year
  Sex: Female

DRUGS (16)
  1. ESTRADIOL. [Concomitant]
     Active Substance: ESTRADIOL
  2. PREDNISONE. [Concomitant]
     Active Substance: PREDNISONE
  3. ATORVASTATIN [Concomitant]
     Active Substance: ATORVASTATIN
  4. ZORTRESS [Suspect]
     Active Substance: EVEROLIMUS
     Indication: HEART TRANSPLANT
     Route: 048
     Dates: start: 201803, end: 201805
  5. MYCOPHENOLATE [Concomitant]
     Active Substance: MYCOPHENOLIC ACID
  6. MAG-OX [Concomitant]
     Active Substance: MAGNESIUM OXIDE
  7. CLOPIDOGREL [Concomitant]
     Active Substance: CLOPIDOGREL BISULFATE
  8. SODIUM BICARB [Concomitant]
     Active Substance: SODIUM BICARBONATE
  9. K-PHOS [Concomitant]
     Active Substance: POTASSIUM PHOSPHATE, MONOBASIC
  10. FERROUS SULFATE. [Concomitant]
     Active Substance: FERROUS SULFATE
  11. LISINOPRIL. [Concomitant]
     Active Substance: LISINOPRIL
  12. AMLODIPINE [Concomitant]
     Active Substance: AMLODIPINE BESYLATE
  13. TACROLIMUS. [Concomitant]
     Active Substance: TACROLIMUS
  14. AMOX-CLAV [Concomitant]
     Active Substance: AMOXICILLIN\CLAVULANATE POTASSIUM
  15. CALCITROL [Concomitant]
     Active Substance: CALCITRIOL
  16. OMEPRAZOLE. [Concomitant]
     Active Substance: OMEPRAZOLE

REACTIONS (2)
  - Sinusitis [None]
  - Diarrhoea [None]

NARRATIVE: CASE EVENT DATE: 20180424
